FAERS Safety Report 6925592-X (Version None)
Quarter: 2010Q3

REPORT INFORMATION
  Report Type: 
  Country: None (occurrence: None)
  Receive Date: 20100816
  Receipt Date: 20100811
  Transmission Date: 20110219
  Serious: Yes (Hospitalization)
  Sender: FDA-Public Use
  Company Number: FR-MERCK-1008FRA00037

PATIENT
  Age: 85 Year
  Sex: Female

DRUGS (16)
  1. PRIMAXIN [Suspect]
     Indication: URINARY TRACT INFECTION
     Route: 042
     Dates: start: 20100507, end: 20100521
  2. PREVISCAN [Suspect]
     Route: 048
     Dates: end: 20100501
  3. NEXIUM [Concomitant]
     Route: 048
  4. KARDEGIC [Concomitant]
     Route: 048
  5. BISOPROLOL FUMARATE [Concomitant]
     Route: 048
  6. COVERSYL (PERINDOPRIL ARGININE) [Concomitant]
     Route: 048
  7. LASIX [Concomitant]
     Route: 048
  8. CORDARONE [Concomitant]
     Route: 048
  9. STABLON [Concomitant]
     Route: 048
     Dates: end: 20100501
  10. TARDYFERON [Concomitant]
     Route: 048
  11. STILNOX [Concomitant]
     Route: 048
  12. DOLIPRANE [Concomitant]
     Route: 048
  13. MORPHINE [Concomitant]
     Route: 048
  14. SPASFON [Concomitant]
     Route: 048
  15. HYDREA [Concomitant]
     Route: 048
  16. FORLAX [Concomitant]
     Route: 065

REACTIONS (1)
  - INTERNATIONAL NORMALISED RATIO INCREASED [None]
